FAERS Safety Report 17279072 (Version 1)
Quarter: 2020Q1

REPORT INFORMATION
  Report Type: Spontaneous
  Country: US (occurrence: US)
  Receive Date: 20200116
  Receipt Date: 20200116
  Transmission Date: 20200409
  Serious: Yes (Hospitalization)
  Sender: FDA-Public Use
  Company Number: US-ASTRAZENECA-2020SE04952

PATIENT
  Age: 89 Year
  Sex: Male
  Weight: 83.5 kg

DRUGS (25)
  1. ASPIRIN. [Concomitant]
     Active Substance: ASPIRIN
  2. CLARITIN [Concomitant]
     Active Substance: LORATADINE
  3. OMEGA 3 [Concomitant]
     Active Substance: OMEGA-3 FATTY ACIDS
  4. METOPROLOL SUCCINATE. [Suspect]
     Active Substance: METOPROLOL SUCCINATE
     Indication: HYPERTENSION
     Route: 048
     Dates: start: 2012
  5. ALPHA LIPOIC ACID [Concomitant]
     Active Substance: .ALPHA.-LIPOIC ACID
  6. SELENIUM [Concomitant]
     Active Substance: SELENIUM
  7. TRAMADOL. [Concomitant]
     Active Substance: TRAMADOL
  8. ENZALUTAMIDE [Suspect]
     Active Substance: ENZALUTAMIDE
     Indication: PROSTATE CANCER
     Route: 048
     Dates: start: 20160805
  9. FLEXERIL [Concomitant]
     Active Substance: CYCLOBENZAPRINE HYDROCHLORIDE
  10. LOMOTIL [Concomitant]
     Active Substance: ATROPINE SULFATE\DIPHENOXYLATE HYDROCHLORIDE
  11. FIORICET [Concomitant]
     Active Substance: ACETAMINOPHEN\BUTALBITAL\CAFFEINE
  12. CRESTOR [Suspect]
     Active Substance: ROSUVASTATIN CALCIUM
     Route: 048
  13. TRIPTORELIN PAMOATE [Concomitant]
     Active Substance: TRIPTORELIN PAMOATE
  14. VITAMIN D3 [Concomitant]
     Active Substance: CHOLECALCIFEROL
  15. GLUCOSAMINE AND CHONDROITIN WITH MSM [Concomitant]
  16. METOPROLOL SUCCINATE. [Suspect]
     Active Substance: METOPROLOL SUCCINATE
     Indication: HYPERTENSION
     Route: 048
     Dates: start: 20191111
  17. PLAVIX [Concomitant]
     Active Substance: CLOPIDOGREL BISULFATE
  18. METFORMIN [Concomitant]
     Active Substance: METFORMIN HYDROCHLORIDE
  19. CALCIUM CARBONATE. [Concomitant]
     Active Substance: CALCIUM CARBONATE
  20. ALTACE [Concomitant]
     Active Substance: RAMIPRIL
  21. GABAPENTIN. [Concomitant]
     Active Substance: GABAPENTIN
  22. COENZYME Q10 [Concomitant]
     Active Substance: UBIDECARENONE
  23. SOYA LECITHIN [Concomitant]
     Active Substance: DIETARY SUPPLEMENT
  24. MAGNESIUM [Concomitant]
     Active Substance: MAGNESIUM
  25. SELENIUM [Concomitant]
     Active Substance: SELENIUM

REACTIONS (6)
  - Bundle branch block right [Unknown]
  - Troponin increased [Not Recovered/Not Resolved]
  - Dizziness [Unknown]
  - Feeling hot [Unknown]
  - Hyperhidrosis [Unknown]
  - Presyncope [Recovered/Resolved]

NARRATIVE: CASE EVENT DATE: 20190504
